FAERS Safety Report 21585938 (Version 3)
Quarter: 2023Q4

REPORT INFORMATION
  Report Type: Report from Study
  Country: US (occurrence: US)
  Receive Date: 20221111
  Receipt Date: 20231004
  Transmission Date: 20240109
  Serious: Yes (Other)
  Sender: FDA-Public Use
  Company Number: US-GW PHARMA-2022-US-034762

PATIENT
  Sex: Male

DRUGS (2)
  1. EPIDIOLEX [Suspect]
     Active Substance: CANNABIDIOL
     Indication: Epilepsy
     Dosage: 1.75 MILLILITER
     Route: 048
     Dates: start: 20200717
  2. EPIDIOLEX [Suspect]
     Active Substance: CANNABIDIOL
     Dosage: 0.25 MILLILITER BY MOUTH IN MORNING, 1.5 MILLILITER IN THE EVENING
     Dates: start: 202007

REACTIONS (3)
  - Surgery [Unknown]
  - Emergency care [Unknown]
  - Off label use [Unknown]
